FAERS Safety Report 15099967 (Version 1)
Quarter: 2018Q3

REPORT INFORMATION
  Report Type: Spontaneous
  Country: AU (occurrence: AU)
  Receive Date: 20180703
  Receipt Date: 20180703
  Transmission Date: 20181010
  Serious: Yes (Other)
  Sender: FDA-Public Use
  Company Number: AU-SUN PHARMACEUTICAL INDUSTRIES LTD-2018RR-177151

PATIENT
  Age: 36 Year
  Sex: Female

DRUGS (7)
  1. IVIG [Suspect]
     Active Substance: HUMAN IMMUNOGLOBULIN G
     Indication: PYODERMA GANGRENOSUM
     Route: 042
  2. METHOTREXATE. [Suspect]
     Active Substance: METHOTREXATE
     Indication: PYODERMA GANGRENOSUM
     Route: 065
  3. PREDNISOLONE. [Suspect]
     Active Substance: PREDNISOLONE
     Indication: PYODERMA GANGRENOSUM
     Dosage: HIGH DOSE
     Route: 048
  4. HYPERBARIC OXYGEN [Concomitant]
     Indication: PYODERMA GANGRENOSUM
     Route: 065
  5. CYCLOSPORIN [Suspect]
     Active Substance: CYCLOSPORINE
     Indication: PYODERMA GANGRENOSUM
     Route: 065
  6. MMF [Suspect]
     Active Substance: MYCOPHENOLATE MOFETIL
     Indication: PYODERMA GANGRENOSUM
     Route: 065
  7. INFLIXIMAB [Suspect]
     Active Substance: INFLIXIMAB
     Indication: PYODERMA GANGRENOSUM
     Route: 065

REACTIONS (5)
  - Central obesity [Unknown]
  - Toxicity to various agents [Unknown]
  - Osteoporosis [Unknown]
  - Diabetes mellitus [Unknown]
  - Drug ineffective [Unknown]
